FAERS Safety Report 11199183 (Version 1)
Quarter: 2015Q2

REPORT INFORMATION
  Report Type: Spontaneous
  Country: US (occurrence: US)
  Receive Date: 20150618
  Receipt Date: 20150618
  Transmission Date: 20150821
  Serious: No
  Sender: FDA-Public Use
  Company Number: US-PFIZER INC-2015198795

PATIENT
  Sex: Female

DRUGS (1)
  1. ADVIL [Suspect]
     Active Substance: IBUPROFEN
     Indication: BACK PAIN
     Dosage: 200 MG, ONCE

REACTIONS (5)
  - Throat irritation [Unknown]
  - Foreign body [Unknown]
  - Dysphagia [Unknown]
  - Product physical issue [Unknown]
  - Feeling abnormal [Unknown]
